FAERS Safety Report 8318163-4 (Version None)
Quarter: 2012Q2

REPORT INFORMATION
  Report Type: 
  Country: None (occurrence: None)
  Receive Date: 20120427
  Receipt Date: 20120419
  Transmission Date: 20120825
  Serious: Yes (Other)
  Sender: FDA-Public Use
  Company Number: ES-JNJFOC-20120300095

PATIENT
  Sex: Female

DRUGS (3)
  1. CYCLOPHOSPHAMIDE [Suspect]
     Indication: BREAST CANCER METASTATIC
     Route: 065
  2. DOXORUBICIN HCL [Suspect]
     Indication: BREAST CANCER METASTATIC
     Route: 042
  3. TRASTUZUMAB [Suspect]
     Indication: BREAST CANCER METASTATIC
     Route: 065

REACTIONS (1)
  - LEFT VENTRICULAR DYSFUNCTION [None]
